FAERS Safety Report 8213966-9 (Version None)
Quarter: 2012Q1

REPORT INFORMATION
  Report Type: 
  Country: None (occurrence: None)
  Receive Date: 20120316
  Receipt Date: 20120315
  Transmission Date: 20120608
  Serious: No
  Sender: FDA-Public Use
  Company Number: US-PFIZER INC-2012068897

PATIENT
  Sex: Female
  Weight: 75.28 kg

DRUGS (5)
  1. LYRICA [Suspect]
     Indication: FIBROMYALGIA
     Dosage: 150 MG, DAILY
     Dates: start: 20111201
  2. LYRICA [Suspect]
     Dosage: 75MG, DAILY
     Dates: start: 20120201
  3. MULTI-VITAMINS [Concomitant]
     Dosage: UNK
  4. PLAQUENIL [Concomitant]
     Indication: RHEUMATOID ARTHRITIS
     Dosage: UNK
  5. BENICAR [Concomitant]
     Indication: HYPERTENSION
     Dosage: 40 MG, DAILY

REACTIONS (1)
  - DIZZINESS [None]
